FAERS Safety Report 8829475 (Version 2)
Quarter: 2012Q4

REPORT INFORMATION
  Report Type: 
  Country: US (occurrence: US)
  Receive Date: 20121008
  Receipt Date: 20121102
  Transmission Date: 20130627
  Serious: Yes (Hospitalization)
  Sender: FDA-Public Use
  Company Number: US-ROCHE-1136544

PATIENT
  Age: 65 Year
  Sex: Female
  Weight: 91.71 kg

DRUGS (3)
  1. PEGASYS [Suspect]
     Indication: HEPATITIS C
     Route: 058
     Dates: start: 20120806, end: 20120907
  2. RIBAVIRIN [Suspect]
     Indication: HEPATITIS C
     Route: 048
     Dates: start: 20120806, end: 20120907
  3. TELAPREVIR [Suspect]
     Indication: HEPATITIS C
     Route: 048
     Dates: end: 20120911

REACTIONS (4)
  - Anaemia [Unknown]
  - Chest pain [Recovered/Resolved]
  - Blood glucose increased [Unknown]
  - Hypothyroidism [Unknown]
